FAERS Safety Report 12268525 (Version 1)
Quarter: 2016Q2

REPORT INFORMATION
  Report Type: Spontaneous
  Country: US (occurrence: US)
  Receive Date: 20160414
  Receipt Date: 20160414
  Transmission Date: 20160815
  Serious: No
  Sender: FDA-Public Use
  Company Number: US-SUN PHARMACEUTICAL INDUSTRIES LTD-2015US-101959

PATIENT
  Sex: Female

DRUGS (1)
  1. CARISOPRODOL. [Suspect]
     Active Substance: CARISOPRODOL
     Indication: PRODUCT USED FOR UNKNOWN INDICATION
     Dosage: 350 MG 3 X PER DAY 1-2 DOSE
     Route: 065
     Dates: start: 20150101

REACTIONS (2)
  - Abdominal discomfort [Recovered/Resolved]
  - Product substitution issue [Recovered/Resolved]
